FAERS Safety Report 20805610 (Version 4)
Quarter: 2022Q2

REPORT INFORMATION
  Report Type: Spontaneous
  Country: CA (occurrence: CA)
  Receive Date: 20220510
  Receipt Date: 20220630
  Transmission Date: 20220721
  Serious: Yes (Hospitalization, Other)
  Sender: FDA-Public Use
  Company Number: CA-CELLTRION INC.-2021CA013745

PATIENT

DRUGS (11)
  1. INFLECTRA [Suspect]
     Active Substance: INFLIXIMAB-DYYB
     Indication: Crohn^s disease
     Dosage: 400 MG (5MG/KG) 0, 2, 6, THEN EVERY 8 WEEKS
     Route: 042
     Dates: start: 20210914, end: 20211102
  2. INFLECTRA [Suspect]
     Active Substance: INFLIXIMAB-DYYB
     Dosage: 400 MG (5MG/KG) 0, 2, 6, THEN EVERY 8 WEEKS
     Route: 042
     Dates: start: 20211001
  3. INFLECTRA [Suspect]
     Active Substance: INFLIXIMAB-DYYB
     Dosage: 400 MG (5MG/KG) 0, 2, 6, THEN EVERY 8 WEEKS
     Route: 042
     Dates: start: 20211001
  4. INFLECTRA [Suspect]
     Active Substance: INFLIXIMAB-DYYB
     Dosage: 400 MG (5MG/KG) 0, 2, 6, THEN EVERY 8 WEEKS
     Route: 042
     Dates: start: 20211102
  5. INFLECTRA [Suspect]
     Active Substance: INFLIXIMAB-DYYB
     Dosage: 5MG/KG) 400 MG  EVERY 4 WEEK
     Route: 042
     Dates: start: 20211203
  6. INFLECTRA [Suspect]
     Active Substance: INFLIXIMAB-DYYB
     Dosage: 400 MG (5MG/KG) 0, 2, 6, THEN EVERY 8 WEEKS
     Route: 042
     Dates: start: 20220128
  7. INFLECTRA [Suspect]
     Active Substance: INFLIXIMAB-DYYB
     Dosage: 400 MG (5MG/KG) 0, 2, 6, THEN EVERY 8 WEEKS
     Route: 042
     Dates: start: 20220325
  8. INFLECTRA [Suspect]
     Active Substance: INFLIXIMAB-DYYB
     Dosage: 400 MG (5MG/KG) 0, 2, 6, THEN EVERY 8 WEEKS
     Route: 042
     Dates: start: 20220422
  9. INFLECTRA [Suspect]
     Active Substance: INFLIXIMAB-DYYB
     Dosage: 5 MG/KG, 400 MG  EVERY 4 WEEK
     Route: 042
     Dates: start: 20220520
  10. INFLECTRA [Suspect]
     Active Substance: INFLIXIMAB-DYYB
     Dosage: 5 MG/KG, 400 MG  EVERY 4 WEEK
     Route: 042
     Dates: start: 20220617
  11. MESALAMINE [Concomitant]
     Active Substance: MESALAMINE
     Dosage: 500 MG (DOSAGE FREQUENCY: UNKNOWN )
     Route: 048

REACTIONS (10)
  - Nephrolithiasis [Unknown]
  - Drug ineffective [Unknown]
  - Off label use [Unknown]
  - Inappropriate schedule of product administration [Unknown]
  - Off label use [Unknown]
  - Off label use [Unknown]
  - Off label use [Unknown]
  - Intentional product use issue [Unknown]
  - Blood pressure fluctuation [Not Recovered/Not Resolved]
  - Heart rate decreased [Unknown]

NARRATIVE: CASE EVENT DATE: 20210914
